FAERS Safety Report 7714111-6 (Version None)
Quarter: 2011Q3

REPORT INFORMATION
  Report Type: 
  Country: None (occurrence: None)
  Receive Date: 20110828
  Receipt Date: 20110824
  Transmission Date: 20111222
  Serious: Yes (Hospitalization, Other)
  Sender: FDA-Public Use
  Company Number: CA-ABBOTT-11P-028-0841130-00

PATIENT
  Sex: Male
  Weight: 72.64 kg

DRUGS (3)
  1. METHOTREXATE [Concomitant]
     Indication: PRODUCT USED FOR UNKNOWN INDICATION
     Route: 048
  2. WARFARIN SODIUM [Concomitant]
     Indication: PRODUCT USED FOR UNKNOWN INDICATION
  3. HUMIRA [Suspect]
     Indication: RHEUMATOID ARTHRITIS
     Route: 058
     Dates: start: 20060706

REACTIONS (14)
  - PYREXIA [None]
  - HYPERHIDROSIS [None]
  - LUNG NEOPLASM [None]
  - EMBOLISM VENOUS [None]
  - B-CELL SMALL LYMPHOCYTIC LYMPHOMA [None]
  - RENAL FAILURE ACUTE [None]
  - LYMPHADENOPATHY [None]
  - ILL-DEFINED DISORDER [None]
  - WEIGHT DECREASED [None]
  - CORONARY ARTERY THROMBOSIS [None]
  - HODGKIN'S DISEASE [None]
  - PNEUMONIA [None]
  - HYPONATRAEMIA [None]
  - ALTERED STATE OF CONSCIOUSNESS [None]
